FAERS Safety Report 5132921-9 (Version None)
Quarter: 2006Q4

REPORT INFORMATION
  Report Type: 
  Country: None (occurrence: None)
  Receive Date: 20061023
  Receipt Date: 20061012
  Transmission Date: 20070319
  Serious: Yes (Hospitalization, Other)
  Sender: FDA-Public Use
  Company Number: PT-JNJFOC-20060805207

PATIENT
  Sex: Female
  Weight: 65.5 kg

DRUGS (7)
  1. RISPERDAL [Suspect]
     Route: 048
  2. RISPERDAL [Suspect]
     Route: 048
  3. RISPERDAL [Suspect]
     Indication: SELF MUTILATION
     Route: 048
  4. ALPRAZOLAM [Suspect]
     Route: 048
  5. ALPRAZOLAM [Suspect]
     Indication: ANXIETY
     Route: 048
  6. ZOLOFT [Concomitant]
     Indication: DEPRESSION
     Route: 048
  7. SERTRALINA ALTER [Concomitant]
     Indication: DEPRESSION

REACTIONS (3)
  - DYSTONIA [None]
  - INTENTIONAL OVERDOSE [None]
  - SELF-INJURIOUS IDEATION [None]
